FAERS Safety Report 22067664 (Version 1)
Quarter: 2023Q1

REPORT INFORMATION
  Report Type: Spontaneous
  Country: NZ (occurrence: NZ)
  Receive Date: 20230307
  Receipt Date: 20230307
  Transmission Date: 20230417
  Serious: Yes (Death, Other)
  Sender: FDA-Public Use
  Company Number: NZ-CELLTRION INC.-2023NZ004730

PATIENT

DRUGS (3)
  1. RITUXIMAB [Suspect]
     Active Substance: RITUXIMAB
     Indication: Epstein-Barr virus associated lymphoma
     Dosage: 7 CYCLES
  2. METHOTREXATE [Suspect]
     Active Substance: METHOTREXATE
     Indication: Epstein-Barr virus associated lymphoma
     Dosage: HIGH DOSE (7 CYCLES)
  3. PROCARBAZINE [Suspect]
     Active Substance: PROCARBAZINE
     Indication: Epstein-Barr virus associated lymphoma
     Dosage: MAINTENANCE CHEMOTHERAPY

REACTIONS (2)
  - Leukoencephalopathy [Fatal]
  - Therapy non-responder [Unknown]
